FAERS Safety Report 20430588 (Version 1)
Quarter: 2022Q1

REPORT INFORMATION
  Report Type: Report from Study
  Country: US (occurrence: US)
  Receive Date: 20220204
  Receipt Date: 20220204
  Transmission Date: 20220423
  Serious: Yes (Hospitalization)
  Sender: FDA-Public Use
  Company Number: None

PATIENT

DRUGS (14)
  1. PEGASPARGASE [Suspect]
     Active Substance: PEGASPARGASE
     Indication: Acute lymphocytic leukaemia
     Dosage: 6150 IU
     Route: 042
     Dates: start: 20200421, end: 20200512
  2. PEGASPARGASE [Suspect]
     Active Substance: PEGASPARGASE
     Dosage: UNK
     Route: 042
     Dates: start: 20200702, end: 20200702
  3. METHOTREXATE [Suspect]
     Active Substance: METHOTREXATE
     Indication: Acute lymphocytic leukaemia
     Dosage: UNK
     Dates: start: 20200421, end: 20200529
  4. METHOTREXATE [Suspect]
     Active Substance: METHOTREXATE
     Dosage: 15 MG
     Route: 037
     Dates: start: 20200701
  5. VINCRISTINE [Suspect]
     Active Substance: VINCRISTINE
     Indication: Acute lymphocytic leukaemia
     Dosage: 10 MG
     Route: 065
     Dates: start: 20200421, end: 20200529
  6. VINCRISTINE [Suspect]
     Active Substance: VINCRISTINE
     Dosage: UNK
     Route: 042
     Dates: start: 20200629, end: 20200713
  7. DOXORUBICIN [Suspect]
     Active Substance: DOXORUBICIN
     Indication: Acute lymphocytic leukaemia
     Dosage: UNK, ON DAYS 1,8,15
     Route: 042
     Dates: start: 20200629, end: 20200713
  8. CYTARABINE [Suspect]
     Active Substance: CYTARABINE
     Indication: Acute lymphocytic leukaemia
     Dosage: UNK, ON DAYS 1,5, 10
     Route: 065
     Dates: start: 20200810, end: 20200820
  9. CYCLOPHOSPHAMIDE [Suspect]
     Active Substance: CYCLOPHOSPHAMIDE
     Indication: Acute lymphocytic leukaemia
     Dosage: UNK
     Route: 065
     Dates: start: 20200810
  10. THIOGUANINE [Suspect]
     Active Substance: THIOGUANINE
     Indication: Acute lymphocytic leukaemia
     Dosage: 420 MG, EVERY 1 WEEK
     Route: 065
     Dates: start: 20200806, end: 20200823
  11. TN UNSPECIFIED [Concomitant]
     Indication: Idiopathic intracranial hypertension
     Dosage: UNK
     Route: 065
  12. TN UNSPECIFIED [Concomitant]
     Indication: Infection prophylaxis
     Dosage: UNK
     Route: 065
  13. SULFAMETHOXAZOLE\TRIMETHOPRIM [Concomitant]
     Active Substance: SULFAMETHOXAZOLE\TRIMETHOPRIM
     Indication: Infection prophylaxis
     Dosage: UNK
     Route: 065
  14. TN UNSPECIFIED [Concomitant]
     Indication: Infection prophylaxis
     Dosage: UNK
     Route: 065

REACTIONS (12)
  - Malaise [Recovered/Resolved with Sequelae]
  - Febrile neutropenia [Recovered/Resolved]
  - Febrile neutropenia [Recovered/Resolved]
  - Headache [Unknown]
  - Musculoskeletal stiffness [Unknown]
  - Visual field defect [Unknown]
  - Pyrexia [Unknown]
  - Full blood count abnormal [Unknown]
  - Tinnitus [Unknown]
  - Photophobia [Unknown]
  - Papilloedema [Unknown]
  - Infection [Unknown]

NARRATIVE: CASE EVENT DATE: 20200101
